FAERS Safety Report 20620764 (Version 2)
Quarter: 2022Q2

REPORT INFORMATION
  Report Type: Spontaneous
  Country: US (occurrence: US)
  Receive Date: 20220322
  Receipt Date: 20220629
  Transmission Date: 20220721
  Serious: Yes (Other)
  Sender: FDA-Public Use
  Company Number: US-SA-SAC20220317000916

PATIENT
  Age: 55 Year
  Sex: Male

DRUGS (2)
  1. ZANTAC [Suspect]
     Active Substance: RANITIDINE HYDROCHLORIDE
     Indication: Abdominal discomfort
     Dosage: 150 MG, QW
     Dates: start: 200001, end: 201803
  2. ZANTAC [Suspect]
     Active Substance: RANITIDINE HYDROCHLORIDE
     Indication: Dyspepsia

REACTIONS (4)
  - Prostate cancer stage I [Recovering/Resolving]
  - Oesophageal carcinoma [Recovering/Resolving]
  - Breast cancer stage IV [Recovering/Resolving]
  - Pancreatic carcinoma stage IV [Recovering/Resolving]

NARRATIVE: CASE EVENT DATE: 20090701
